FAERS Safety Report 8439665-6 (Version None)
Quarter: 2012Q2

REPORT INFORMATION
  Report Type: 
  Country: None (occurrence: None)
  Receive Date: 20120615
  Receipt Date: 20120605
  Transmission Date: 20120825
  Serious: Yes (Hospitalization, Other)
  Sender: FDA-Public Use
  Company Number: US-SANOFI-AVENTIS-2012SA040224

PATIENT
  Age: 67 Year
  Sex: Male
  Weight: 73 kg

DRUGS (2)
  1. PLAVIX [Suspect]
     Indication: STENT PLACEMENT
     Route: 048
     Dates: start: 20081001
  2. TERAZOSIN HCL [Concomitant]
     Indication: PROSTATE CANCER

REACTIONS (5)
  - CORONARY ARTERY OCCLUSION [None]
  - EPISTAXIS [None]
  - HAEMATEMESIS [None]
  - SYNCOPE [None]
  - BLOOD PRESSURE DECREASED [None]
